FAERS Safety Report 15113892 (Version 1)
Quarter: 2018Q3

REPORT INFORMATION
  Report Type: Spontaneous
  Country: FR (occurrence: FR)
  Receive Date: 20180706
  Receipt Date: 20180706
  Transmission Date: 20181010
  Serious: Yes (Other)
  Sender: FDA-Public Use
  Company Number: FR-009507513-1802FRA003758

PATIENT
  Age: 33 Year
  Sex: Female
  Weight: 50 kg

DRUGS (1)
  1. NEXPLANON [Suspect]
     Active Substance: ETONOGESTREL
     Indication: CONTRACEPTIVE IMPLANT
     Dosage: 1 DF, UNK, IN THE GROOVE BETWEEN THE BICEPS AND THE TRICEPS
     Route: 059
     Dates: start: 20150122, end: 20180327

REACTIONS (8)
  - Device difficult to use [Recovered/Resolved]
  - Peripheral swelling [Unknown]
  - Incorrect drug administration duration [Unknown]
  - Device deployment issue [Recovered/Resolved]
  - Pain in extremity [Unknown]
  - Complication of device removal [Recovered/Resolved]
  - Device dislocation [Recovered/Resolved]
  - General anaesthesia [Recovered/Resolved]

NARRATIVE: CASE EVENT DATE: 2018
